FAERS Safety Report 14698949 (Version 33)
Quarter: 2022Q4

REPORT INFORMATION
  Report Type: Other
  Country: DE (occurrence: None)
  Receive Date: 20180330
  Receipt Date: 20221230
  Transmission Date: 20230113
  Serious: Yes (Hospitalization, Disabling, Other)
  Sender: FDA-Public Use
  Company Number: DE-ROCHE-2096691

PATIENT
  Age: 50 Year
  Sex: Male
  Weight: 70.9 kg

DRUGS (17)
  1. OCREVUS [Suspect]
     Active Substance: OCRELIZUMAB
     Indication: Primary progressive multiple sclerosis
     Dosage: THEN 600MG ONCE IN 183 DAYS.
     Route: 042
     Dates: start: 20180226
  2. OCREVUS [Suspect]
     Active Substance: OCRELIZUMAB
     Route: 042
     Dates: start: 20190916
  3. OCREVUS [Suspect]
     Active Substance: OCRELIZUMAB
     Route: 042
     Dates: start: 20200415
  4. OCREVUS [Suspect]
     Active Substance: OCRELIZUMAB
     Route: 042
     Dates: start: 20201013
  5. OCREVUS [Suspect]
     Active Substance: OCRELIZUMAB
     Dosage: NEXT DOSE ON: 19/OCT/2021
     Route: 042
     Dates: start: 20210401
  6. VALPROATE SODIUM [Concomitant]
     Active Substance: VALPROATE SODIUM
     Indication: Epilepsy
     Dosage: 750-0-750 MG
  7. VALPROATE SODIUM [Concomitant]
     Active Substance: VALPROATE SODIUM
     Dosage: 1-0-1
  8. VALPROATE SODIUM [Concomitant]
     Active Substance: VALPROATE SODIUM
     Dosage: 1-0-1
     Route: 048
  9. VALPROATE SODIUM [Concomitant]
     Active Substance: VALPROATE SODIUM
     Dosage: 1-0-1
     Route: 048
  10. GABAPENTIN [Concomitant]
     Active Substance: GABAPENTIN
     Indication: Neuralgia
  11. GABAPENTIN [Concomitant]
     Active Substance: GABAPENTIN
     Dosage: 1-1-1
     Route: 048
  12. GABAPENTIN [Concomitant]
     Active Substance: GABAPENTIN
     Dosage: 1-0-1
     Route: 048
  13. CITALOPRAM [Concomitant]
     Active Substance: CITALOPRAM HYDROBROMIDE
     Indication: Depression
     Dosage: 1-0-0
     Route: 048
  14. NABIXIMOLS [Concomitant]
     Active Substance: NABIXIMOLS
  15. CHOLECALCIFEROL [Concomitant]
     Active Substance: CHOLECALCIFEROL
  16. CORTISONE [Concomitant]
     Active Substance: CORTISONE
     Route: 042
     Dates: start: 201911, end: 201911
  17. PREGABALIN [Concomitant]
     Active Substance: PREGABALIN

REACTIONS (45)
  - Immunodeficiency [Recovered/Resolved]
  - Epilepsy [Recovered/Resolved]
  - Gait disturbance [Recovered/Resolved]
  - Chills [Recovered/Resolved]
  - Pyrexia [Recovered/Resolved]
  - Nausea [Recovered/Resolved]
  - Vomiting [Recovered/Resolved]
  - Dizziness [Recovered/Resolved]
  - Pruritus [Recovered/Resolved]
  - Thirst [Recovered/Resolved]
  - Headache [Recovered/Resolved]
  - Nasopharyngitis [Recovered/Resolved]
  - Eye pruritus [Recovered/Resolved]
  - Herpes virus infection [Recovered/Resolved]
  - Head discomfort [Recovered/Resolved]
  - Hypoaesthesia [Recovered/Resolved]
  - Muscular weakness [Recovered/Resolved]
  - Carotid arteriosclerosis [Unknown]
  - Depressed mood [Recovered/Resolved]
  - Mental impairment [Recovered/Resolved]
  - Increased appetite [Recovered/Resolved]
  - Back pain [Unknown]
  - Tremor [Recovered/Resolved]
  - Hypoaesthesia [Recovered/Resolved]
  - Haematoma [Recovered/Resolved]
  - Contusion [Recovered/Resolved]
  - Acute stress disorder [Recovered/Resolved]
  - Asthenia [Recovered/Resolved]
  - Withdrawal syndrome [Recovered/Resolved]
  - Uhthoff^s phenomenon [Recovered/Resolved]
  - Dysaesthesia [Recovered/Resolved]
  - Fatigue [Not Recovered/Not Resolved]
  - Apathy [Recovered/Resolved]
  - Gait disturbance [Recovered/Resolved]
  - Blood iron decreased [Not Recovered/Not Resolved]
  - Bone contusion [Recovered/Resolved]
  - Fall [Unknown]
  - Infection [Recovered/Resolved]
  - Abscess jaw [Recovered/Resolved]
  - Pulpitis dental [Recovered/Resolved]
  - Wound [Recovered/Resolved]
  - Heart rate increased [Recovered/Resolved]
  - Carotid arteriosclerosis [Not Recovered/Not Resolved]
  - Tremor [Not Recovered/Not Resolved]
  - Memory impairment [Not Recovered/Not Resolved]

NARRATIVE: CASE EVENT DATE: 20180226
